FAERS Safety Report 9775274 (Version 2)
Quarter: 2013Q4

REPORT INFORMATION
  Report Type: Report from Study
  Country: US (occurrence: US)
  Receive Date: 20131220
  Receipt Date: 20131220
  Transmission Date: 20140711
  Serious: Yes (Hospitalization, Other)
  Sender: FDA-Public Use
  Company Number: US-ABBVIE-13P-163-1174182-00

PATIENT
  Sex: Male

DRUGS (2)
  1. CREON [Suspect]
     Indication: PANCREATITIS CHRONIC
  2. CREON [Suspect]
     Indication: PANCREATIC INSUFFICIENCY

REACTIONS (4)
  - Palpitations [Unknown]
  - Acute coronary syndrome [Recovered/Resolved]
  - Polyp [Unknown]
  - Pancreatitis [Unknown]
